FAERS Safety Report 13302450 (Version 1)
Quarter: 2017Q1

REPORT INFORMATION
  Report Type: Spontaneous
  Country: US (occurrence: US)
  Receive Date: 20170307
  Receipt Date: 20170307
  Transmission Date: 20170428
  Serious: Yes (Hospitalization)
  Sender: FDA-Public Use
  Company Number: US-BECTON DICKINSON-2017BDN00035

PATIENT
  Age: 69 Year
  Sex: Female
  Weight: 65.31 kg

DRUGS (3)
  1. CHLORAPREP WITH TINT [Suspect]
     Active Substance: CHLORHEXIDINE GLUCONATE\ISOPROPYL ALCOHOL
     Indication: INFECTION PROPHYLAXIS
     Dosage: UNK
     Route: 061
     Dates: start: 20161122, end: 20161122
  2. PROAIR HFA [Concomitant]
     Active Substance: ALBUTEROL SULFATE
     Dosage: UNK, AS NEEDED
  3. GABAPENTIN. [Concomitant]
     Active Substance: GABAPENTIN
     Dosage: 300 MG, 4X/DAY

REACTIONS (1)
  - Dermatitis contact [Recovered/Resolved]

NARRATIVE: CASE EVENT DATE: 20161124
